FAERS Safety Report 16401295 (Version 1)
Quarter: 2019Q2

REPORT INFORMATION
  Report Type: Spontaneous
  Country: US (occurrence: US)
  Receive Date: 20190606
  Receipt Date: 20190606
  Transmission Date: 20190711
  Serious: No
  Sender: FDA-Public Use
  Company Number: US-PTC THERAPEUTICS, INC.-US-2019PTC000248

PATIENT
  Age: 10 Year
  Sex: Male

DRUGS (1)
  1. EMFLAZA [Suspect]
     Active Substance: DEFLAZACORT
     Indication: DUCHENNE MUSCULAR DYSTROPHY
     Dosage: 54 MG, QD
     Route: 048
     Dates: start: 20180201

REACTIONS (6)
  - Swelling face [Unknown]
  - Peripheral swelling [Unknown]
  - Rash papular [Unknown]
  - Hair growth abnormal [Unknown]
  - Blister [Unknown]
  - Contusion [Unknown]

NARRATIVE: CASE EVENT DATE: 201902
